FAERS Safety Report 25926319 (Version 1)
Quarter: 2025Q4

REPORT INFORMATION
  Report Type: Spontaneous
  Country: EU (occurrence: EU)
  Receive Date: 20251015
  Receipt Date: 20251015
  Transmission Date: 20260118
  Serious: Yes (Life-Threatening)
  Sender: MERCK SHARP & DOHME LLC
  Company Number: None

PATIENT
  Age: 84 Year
  Sex: Female

DRUGS (1)
  1. KEYTRUDA [Suspect]
     Active Substance: PEMBROLIZUMAB
     Indication: Malignant melanoma
     Route: 042
     Dates: start: 20250702, end: 20250702

REACTIONS (1)
  - Myocarditis-myositis-myasthenia gravis overlap syndrome [Recovering/Resolving]

NARRATIVE: CASE EVENT DATE: 20250721
